FAERS Safety Report 12895077 (Version 2)
Quarter: 2018Q1

REPORT INFORMATION
  Report Type: Report from Study
  Country: DE (occurrence: DE)
  Receive Date: 20161029
  Receipt Date: 20180209
  Transmission Date: 20180508
  Serious: Yes (Hospitalization)
  Sender: FDA-Public Use
  Company Number: DE-AMGEN-DEUSP2016149672

PATIENT
  Age: 84 Year
  Sex: Female

DRUGS (1)
  1. ENBREL [Suspect]
     Active Substance: ETANERCEPT
     Indication: RHEUMATOID ARTHRITIS
     Dosage: 50 MG, WEEKLY
     Route: 065
     Dates: start: 20160107

REACTIONS (6)
  - Laceration [Recovered/Resolved]
  - Fall [Recovered/Resolved]
  - Fall [Not Recovered/Not Resolved]
  - Pruritus generalised [Not Recovered/Not Resolved]
  - Hip fracture [Recovered/Resolved]
  - Hip fracture [Not Recovered/Not Resolved]

NARRATIVE: CASE EVENT DATE: 201606
